FAERS Safety Report 6785839-X (Version None)
Quarter: 2010Q2

REPORT INFORMATION
  Report Type: 
  Country: None (occurrence: None)
  Receive Date: 20100623
  Receipt Date: 20100617
  Transmission Date: 20101027
  Serious: Yes (Hospitalization)
  Sender: FDA-Public Use
  Company Number: GB-PFIZER INC-2006129962

PATIENT
  Age: 67 Year
  Sex: Male
  Weight: 55.3 kg

DRUGS (11)
  1. SUNITINIB MALATE [Suspect]
     Indication: METASTATIC RENAL CELL CARCINOMA
     Dosage: 50 MG, 1X/DAY
     Route: 048
     Dates: start: 20060720, end: 20060816
  2. SUNITINIB MALATE [Suspect]
     Dosage: UNK MG, 1X/DAY
     Route: 048
     Dates: start: 20060831, end: 20060927
  3. SUNITINIB MALATE [Suspect]
     Dosage: 37.5 MG, 1X/DAY
     Route: 048
     Dates: start: 20061012, end: 20061019
  4. LEVOTHYROXINE SODIUM [Concomitant]
     Indication: HYPOTHYROIDISM
     Dosage: UNK
     Route: 048
  5. MESALAZINE [Concomitant]
     Indication: COLITIS ULCERATIVE
     Dosage: UNK
     Route: 048
  6. SIMVASTATIN [Concomitant]
     Indication: HYPERCHOLESTEROLAEMIA
     Dosage: UNK
     Route: 048
  7. RAMIPRIL [Concomitant]
     Indication: HYPERTENSION
     Dosage: UNK
     Route: 048
  8. BISOPROLOL [Concomitant]
     Indication: HYPERTENSION
     Dosage: UNK
     Route: 048
  9. TAMSULOSIN HCL [Concomitant]
     Indication: BENIGN PROSTATIC HYPERPLASIA
     Dosage: UNK
     Route: 048
  10. SENNA [Concomitant]
     Indication: CONSTIPATION
     Dosage: UNK
     Route: 048
  11. DOMPERIDONE [Concomitant]
     Indication: NAUSEA
     Dosage: UNK
     Route: 048

REACTIONS (1)
  - ANGINA PECTORIS [None]
